FAERS Safety Report 4971351-7 (Version None)
Quarter: 2006Q2

REPORT INFORMATION
  Report Type: 
  Country: None (occurrence: None)
  Receive Date: 20060413
  Receipt Date: 20060404
  Transmission Date: 20061013
  Serious: Yes (Hospitalization)
  Sender: FDA-Public Use
  Company Number: 2006SE01957

PATIENT
  Age: 63 Year
  Sex: Male
  Weight: 71 kg

DRUGS (6)
  1. BLOPRESS [Suspect]
     Indication: HYPERTENSION
     Route: 048
     Dates: start: 20040206, end: 20060206
  2. TAKEPRON OD TABLETS 15 [Concomitant]
     Route: 048
  3. AMLODIN [Concomitant]
     Route: 048
  4. KREMEZIN [Concomitant]
     Route: 048
  5. BENZALIN [Concomitant]
     Route: 048
  6. FRANDOL [Concomitant]
     Route: 062

REACTIONS (1)
  - RHABDOMYOLYSIS [None]
